FAERS Safety Report 25373739 (Version 1)
Quarter: 2025Q2

REPORT INFORMATION
  Report Type: Spontaneous
  Country: US (occurrence: US)
  Receive Date: 20250529
  Receipt Date: 20250529
  Transmission Date: 20250717
  Serious: No
  Sender: MERCK SHARP & DOHME LLC
  Company Number: US-009507513-2283672

PATIENT
  Sex: Male

DRUGS (2)
  1. PEMBROLIZUMAB [Suspect]
     Active Substance: PEMBROLIZUMAB
     Indication: Desmoplastic small round cell tumour
  2. AXITINIB [Concomitant]
     Active Substance: AXITINIB
     Indication: Desmoplastic small round cell tumour

REACTIONS (1)
  - Drug ineffective [Unknown]
